FAERS Safety Report 7152514-1 (Version None)
Quarter: 2010Q4

REPORT INFORMATION
  Report Type: 
  Country: None (occurrence: None)
  Receive Date: 20101213
  Receipt Date: 20101209
  Transmission Date: 20110411
  Serious: No
  Sender: FDA-Public Use
  Company Number: US-PFIZER INC-2010168537

PATIENT
  Sex: Female
  Weight: 66.667 kg

DRUGS (5)
  1. CHANTIX [Suspect]
     Indication: SMOKING CESSATION THERAPY
     Dosage: 0.5 MG, DAILY
     Route: 048
     Dates: start: 20101129
  2. PEGINTERFERON ALFA-2B [Concomitant]
     Indication: HEPATITIS C
     Dosage: UNK
  3. ALPRAZOLAM [Concomitant]
     Dosage: UNK
     Dates: start: 20090701
  4. PERCOCET [Concomitant]
     Dosage: UNK
  5. GABAPENTIN [Concomitant]
     Dosage: 800 MG, UNK

REACTIONS (3)
  - ABNORMAL DREAMS [None]
  - DRUG INEFFECTIVE [None]
  - NAUSEA [None]
